FAERS Safety Report 6240519 (Version 3)
Quarter: 2013Q1

REPORT INFORMATION
  Report Type: Spontaneous
  Country: US (occurrence: US)
  Receive Date: 20070218
  Receipt Date: 20130228
  Transmission Date: 20140127
  Serious: No
  Sender: FDA-Public Use
  Company Number: US-RB-3477-2006

PATIENT
  Age: 30 Year
  Sex: Female
  Weight: 46 kg

DRUGS (3)
  1. SUBOXONE [Suspect]
     Indication: DRUG DEPENDENCE
     Dosage: PATIENT REPORTS BETWEEN 12-20 MG QD
     Route: 060
     Dates: start: 20051116, end: 20060101
  2. SUBOXONE [Suspect]
     Dosage: CUMULATIVE DOSE:  960  MG
     Route: 060
     Dates: start: 20060102, end: 20060531
  3. SUBOXONE [Suspect]
     Dosage: CUMULATIVE DOSE:  88  MG
     Route: 060
     Dates: start: 20060601

REACTIONS (1)
  - Exposure during pregnancy [Recovered/Resolved]
